FAERS Safety Report 7599726-0 (Version None)
Quarter: 2011Q2

REPORT INFORMATION
  Report Type: 
  Country: None (occurrence: None)
  Receive Date: 20110629
  Receipt Date: 20110620
  Transmission Date: 20111010
  Serious: Yes (Hospitalization, Other)
  Sender: FDA-Public Use
  Company Number: 2011BN00061

PATIENT
  Age: 70 Year
  Sex: Female

DRUGS (5)
  1. PREDNISOLONE [Suspect]
     Indication: MULTIPLE MYELOMA
  2. DOXORUBICIN HCL [Suspect]
     Indication: MULTIPLE MYELOMA
  3. MELPHALAN HYDROCHLORIDE [Suspect]
     Indication: MULTIPLE MYELOMA
  4. DEXAMETHASONE [Suspect]
     Indication: MULTIPLE MYELOMA
  5. VINCRISTINE [Suspect]
     Indication: MULTIPLE MYELOMA

REACTIONS (5)
  - TYPE 1 DIABETES MELLITUS [None]
  - EPSTEIN-BARR VIRUS INFECTION [None]
  - DIABETIC KETOACIDOSIS [None]
  - LIVER DISORDER [None]
  - METABOLIC ACIDOSIS [None]
